FAERS Safety Report 4308118-9 (Version None)
Quarter: 2004Q1

REPORT INFORMATION
  Report Type: 
  Country: None (occurrence: None)
  Receive Date: 20040301
  Receipt Date: 20030528
  Transmission Date: 20041129
  Serious: No
  Sender: FDA-Public Use
  Company Number: US-BRISTOL-MYERS SQUIBB COMPANY-12286522

PATIENT
  Sex: Male

DRUGS (4)
  1. METFORMIN HCL [Suspect]
     Indication: DIABETES MELLITUS NON-INSULIN-DEPENDENT
  2. LIPITOR [Suspect]
  3. ACTOS [Suspect]
  4. LISINOPRIL [Suspect]
     Indication: MYOCARDIAL INFARCTION

REACTIONS (1)
  - RASH [None]
